FAERS Safety Report 8134194-1 (Version None)
Quarter: 2012Q1

REPORT INFORMATION
  Report Type: 
  Country: None (occurrence: None)
  Receive Date: 20120209
  Receipt Date: 20120203
  Transmission Date: 20120608
  Serious: Yes (Other)
  Sender: FDA-Public Use
  Company Number: AUR-APL-2012-00180

PATIENT
  Age: 76 Year
  Sex: Female

DRUGS (12)
  1. SINGULAIR [Concomitant]
  2. ZOLPIDEM [Suspect]
     Indication: INSOMNIA
     Dosage: (2 DOSAGE FORMS), ORAL, ORAL, (1 DOSAGE FORMS, 1 D), ORAL
     Route: 048
     Dates: start: 20120101
  3. ZOLPIDEM [Suspect]
     Indication: INSOMNIA
     Dosage: (2 DOSAGE FORMS), ORAL, ORAL, (1 DOSAGE FORMS, 1 D), ORAL
     Route: 048
     Dates: start: 20120102
  4. TRIAMTERENE/HCTZ (DYAZIDE) [Concomitant]
  5. LOSARTAN POTASSIUM [Concomitant]
  6. ALLEGRO (FLUTICASONE PROPIONATE) [Concomitant]
  7. ACETAMINOPHEN [Concomitant]
  8. PRILOSEC [Concomitant]
  9. INSULIN (INSULIN) [Concomitant]
  10. METOPROLOL TARTRATE [Concomitant]
  11. AMITRIPTYLINE HCL [Concomitant]
  12. LEVOTHYROXINE SODIUM [Concomitant]

REACTIONS (1)
  - DRUG INEFFECTIVE [None]
